FAERS Safety Report 9500080 (Version 1)
Quarter: 2013Q3

REPORT INFORMATION
  Report Type: Spontaneous
  Country: CA (occurrence: None)
  Receive Date: 20130903
  Receipt Date: 20130903
  Transmission Date: 20140515
  Serious: Yes (Death, Other)
  Sender: FDA-Public Use
  Company Number: IPC201308-000350

PATIENT
  Age: 48 Year
  Sex: Male

DRUGS (3)
  1. ALLOPURINOL [Suspect]
     Indication: INFLAMMATORY BOWEL DISEASE
  2. AZATHIOPRINE [Suspect]
     Indication: INFLAMMATORY BOWEL DISEASE
  3. MERCAPTAPURINE [Suspect]
     Indication: INFLAMMATORY BOWEL DISEASE

REACTIONS (2)
  - Testicular cancer metastatic [None]
  - Recurrent cancer [None]
